FAERS Safety Report 7321010-0 (Version None)
Quarter: 2011Q1

REPORT INFORMATION
  Report Type: 
  Country: None (occurrence: None)
  Receive Date: 20110228
  Receipt Date: 20110218
  Transmission Date: 20110831
  Serious: Yes (Other)
  Sender: FDA-Public Use
  Company Number: JP-JNJFOC-20110206950

PATIENT
  Sex: Female

DRUGS (1)
  1. RISPERDAL [Suspect]
     Indication: ILL-DEFINED DISORDER
     Route: 048

REACTIONS (9)
  - SPEECH DISORDER [None]
  - SOMNOLENCE [None]
  - APATHY [None]
  - DISTURBANCE IN ATTENTION [None]
  - PALPITATIONS [None]
  - ACTIVITIES OF DAILY LIVING IMPAIRED [None]
  - MUSCULAR WEAKNESS [None]
  - JUDGEMENT IMPAIRED [None]
  - ABASIA [None]
